FAERS Safety Report 9010584 (Version 1)
Quarter: 2013Q1

REPORT INFORMATION
  Report Type: Spontaneous
  Country: US (occurrence: US)
  Receive Date: 20130109
  Receipt Date: 20130109
  Transmission Date: 20140127
  Serious: Yes (Death)
  Sender: FDA-Public Use
  Company Number: US-009507513-0812USA00678

PATIENT
  Age: 16 Year
  Sex: Male
  Weight: 75.3 kg

DRUGS (4)
  1. SINGULAIR [Suspect]
     Indication: ASTHMA
     Dosage: 10 MG, QD
     Route: 048
     Dates: start: 20031013, end: 20060821
  2. SINGULAIR [Suspect]
     Indication: HYPERSENSITIVITY
     Dosage: 1 TAB, QD
     Route: 048
  3. ADVAIR [Concomitant]
  4. ALBUTEROL [Concomitant]
     Dosage: 1

REACTIONS (1)
  - Completed suicide [Fatal]
